FAERS Safety Report 17238755 (Version 2)
Quarter: 2020Q1

REPORT INFORMATION
  Report Type: Spontaneous
  Country: HU (occurrence: HU)
  Receive Date: 20200106
  Receipt Date: 20200120
  Transmission Date: 20200409
  Serious: Yes (Other)
  Sender: FDA-Public Use
  Company Number: HU-MYLANLABS-2020M1000149

PATIENT
  Sex: Male

DRUGS (5)
  1. ALLOPURINOL. [Suspect]
     Active Substance: ALLOPURINOL
     Indication: PRODUCT USED FOR UNKNOWN INDICATION
     Dosage: UNK
     Route: 065
  2. NILOTINIB [Suspect]
     Active Substance: NILOTINIB
     Indication: CHRONIC MYELOID LEUKAEMIA
     Dosage: 400 MG, QD (2X/DAILY)
     Route: 065
     Dates: start: 201011
  3. NILOTINIB [Suspect]
     Active Substance: NILOTINIB
     Dosage: 300 MG, UNK (2X)
     Route: 065
  4. NILOTINIB [Suspect]
     Active Substance: NILOTINIB
     Indication: CHRONIC MYELOID LEUKAEMIA
     Dosage: 400 MG, QD (2X/DAILY)
     Route: 065
     Dates: start: 201111
  5. GLIVEC [Suspect]
     Active Substance: IMATINIB MESYLATE
     Indication: CHRONIC MYELOID LEUKAEMIA
     Dosage: 400 MG, QD (1X/DAILY)
     Route: 065
     Dates: start: 200804, end: 201009

REACTIONS (7)
  - Drug ineffective [Unknown]
  - Leukostasis syndrome [Unknown]
  - Fatigue [Unknown]
  - Splenomegaly [Unknown]
  - Malaise [Unknown]
  - Drug resistance [Unknown]
  - Hyperhidrosis [Unknown]
